FAERS Safety Report 9222149 (Version 2)
Quarter: 2013Q2

REPORT INFORMATION
  Report Type: Spontaneous
  Country: US (occurrence: None)
  Receive Date: 20130408
  Receipt Date: 20130508
  Transmission Date: 20140414
  Serious: Yes (Other)
  Sender: FDA-Public Use
  Company Number: VAL_02270_2013

PATIENT
  Sex: Female

DRUGS (4)
  1. TOPROL (NOT SPECIFIED) [Suspect]
     Indication: PRODUCT USED FOR UNKNOWN INDICATION
     Dosage: (DF (REGIMENT#1))
  2. EXFORGE [Suspect]
     Indication: PRODUCT USED FOR UNKNOWN INDICATION
     Dosage: (1 DF (160 VALS/ 10MG AMLO))
  3. VALSARTAN/HYDROCHLOROTHIAZIDE [Suspect]
     Indication: PRODUCT USED FOR UNKNOWN INDICATION
     Dosage: (DF REGIMEN #1)
  4. WELCHOL [Suspect]
     Indication: PRODUCT USED FOR UNKNOWN INDICATION
     Dosage: (DF(REGIMEN #1))

REACTIONS (3)
  - Drug ineffective [None]
  - Product quality issue [None]
  - Blood pressure increased [None]
